FAERS Safety Report 13893953 (Version 1)
Quarter: 2017Q3

REPORT INFORMATION
  Report Type: Spontaneous
  Country: US (occurrence: US)
  Receive Date: 20170822
  Receipt Date: 20170822
  Transmission Date: 20171127
  Serious: Yes (Hospitalization)
  Sender: FDA-Public Use
  Company Number: US-ALVA-AMCO PHARMACAL COMPANIES, INC.-2024930

PATIENT
  Sex: Female

DRUGS (1)
  1. NAUZENE [Suspect]
     Active Substance: DEXTROSE\FRUCTOSE\TRISODIUM CITRATE DIHYDRATE
     Indication: NAUSEA
     Route: 048
     Dates: start: 20170809, end: 20170809

REACTIONS (3)
  - Product solubility abnormal [None]
  - Intestinal obstruction [None]
  - Wrong technique in product usage process [Recovered/Resolved with Sequelae]

NARRATIVE: CASE EVENT DATE: 20170809
